FAERS Safety Report 7727024-0 (Version None)
Quarter: 2011Q3

REPORT INFORMATION
  Report Type: 
  Country: None (occurrence: None)
  Receive Date: 20110902
  Receipt Date: 20110819
  Transmission Date: 20111222
  Serious: No
  Sender: FDA-Public Use
  Company Number: US-B.I. PHARMACEUTICALS,INC./RIDGEFIELD-2011-BP-16578BP

PATIENT
  Sex: Male
  Weight: 85.28 kg

DRUGS (7)
  1. FISH OIL [Concomitant]
     Indication: SUPPLEMENTATION THERAPY
     Route: 048
  2. PRADAXA [Suspect]
     Indication: CEREBROVASCULAR ACCIDENT PROPHYLAXIS
     Dosage: 300 MG
     Route: 048
     Dates: start: 20101228, end: 20110722
  3. PRADAXA [Suspect]
     Indication: ATRIAL FIBRILLATION
  4. MULTI-VITAMIN [Concomitant]
     Indication: SUPPLEMENTATION THERAPY
     Route: 048
  5. LISINOPRIL [Concomitant]
     Indication: HYPERTENSION
     Dosage: 20 MG
     Route: 048
     Dates: start: 20110407
  6. PRAVACHOL [Concomitant]
     Indication: BLOOD CHOLESTEROL INCREASED
     Dosage: 40 MG
     Route: 048
     Dates: start: 20100108, end: 20110808
  7. CHLORTHALIDONE [Concomitant]
     Dosage: 15 MG
     Dates: start: 20110407, end: 20110808

REACTIONS (11)
  - PAIN [None]
  - MUSCLE SPASMS [None]
  - ASTHENIA [None]
  - DYSPHAGIA [None]
  - LIMB INJURY [None]
  - MYALGIA [None]
  - ARTHRALGIA [None]
  - GINGIVAL BLEEDING [None]
  - COAGULATION TIME PROLONGED [None]
  - PAIN IN EXTREMITY [None]
  - HAEMORRHAGE [None]
